FAERS Safety Report 24427871 (Version 1)
Quarter: 2024Q4

REPORT INFORMATION
  Report Type: Report from Study
  Country: CA (occurrence: CA)
  Receive Date: 20241011
  Receipt Date: 20241011
  Transmission Date: 20250115
  Serious: Yes (Other)
  Sender: PFIZER
  Company Number: CA-PFIZER INC-202400274301

PATIENT
  Sex: Male

DRUGS (6)
  1. METHYLPREDNISOLONE SODIUM SUCCINATE [Suspect]
     Active Substance: METHYLPREDNISOLONE SODIUM SUCCINATE
     Route: 065
  2. OCRELIZUMAB [Suspect]
     Active Substance: OCRELIZUMAB
     Indication: Relapsing-remitting multiple sclerosis
     Dosage: 300 MG 1 EVERY 2 WEEKS
  3. ALLOPURINOL [Concomitant]
     Active Substance: ALLOPURINOL
  4. AMLODIPINE BESYLATE [Concomitant]
     Active Substance: AMLODIPINE BESYLATE
  5. RAMIPRIL [Concomitant]
     Active Substance: RAMIPRIL
  6. TOPIRAMATE [Concomitant]
     Active Substance: TOPIRAMATE

REACTIONS (13)
  - Abdominal discomfort [Not Recovered/Not Resolved]
  - Dyspepsia [Not Recovered/Not Resolved]
  - Hyperhidrosis [Not Recovered/Not Resolved]
  - Infusion related reaction [Not Recovered/Not Resolved]
  - Pruritus [Not Recovered/Not Resolved]
  - Cold sweat [Not Recovered/Not Resolved]
  - Formication [Not Recovered/Not Resolved]
  - Multiple sclerosis [Not Recovered/Not Resolved]
  - Neuropathy peripheral [Not Recovered/Not Resolved]
  - Penile pain [Not Recovered/Not Resolved]
  - Photophobia [Not Recovered/Not Resolved]
  - Temperature intolerance [Not Recovered/Not Resolved]
  - Urinary incontinence [Not Recovered/Not Resolved]
